FAERS Safety Report 9772134 (Version 1)
Quarter: 2013Q4

REPORT INFORMATION
  Report Type: Spontaneous
  Country: US (occurrence: None)
  Receive Date: 20131218
  Receipt Date: 20131218
  Transmission Date: 20140711
  Serious: Yes (Hospitalization)
  Sender: FDA-Public Use
  Company Number: None

PATIENT
  Age: 49 Year
  Sex: Female
  Weight: 138 kg

DRUGS (1)
  1. LISINOPRIL 10 MG [Suspect]
     Indication: BLOOD PRESSURE
     Dosage: 1 ONCE DAILY TAKEN BY MOUTH
     Route: 048
     Dates: start: 20131211, end: 20131217

REACTIONS (3)
  - Pruritus [None]
  - Paraesthesia [None]
  - Swelling face [None]
